FAERS Safety Report 9192368 (Version 1)
Quarter: 2013Q1

REPORT INFORMATION
  Report Type: Spontaneous
  Country: US (occurrence: None)
  Receive Date: 20130326
  Receipt Date: 20130326
  Transmission Date: 20140127
  Serious: Yes (Other)
  Sender: FDA-Public Use
  Company Number: None

PATIENT
  Age: 61 Year
  Sex: Female
  Weight: 87 kg

DRUGS (2)
  1. PROMETHAZINE [Suspect]
     Indication: NAUSEA
     Route: 041
     Dates: start: 20130325, end: 20130325
  2. PROMETHAZINE [Concomitant]

REACTIONS (2)
  - Akathisia [None]
  - Drug ineffective [None]
